FAERS Safety Report 16028081 (Version 1)
Quarter: 2019Q1

REPORT INFORMATION
  Report Type: Spontaneous
  Country: IT (occurrence: IT)
  Receive Date: 20190304
  Receipt Date: 20190304
  Transmission Date: 20190418
  Serious: Yes (Other)
  Sender: FDA-Public Use
  Company Number: IT-TEVA-289632ISR

PATIENT
  Age: 44 Year
  Sex: Male

DRUGS (5)
  1. PARACETAMOLO [Suspect]
     Active Substance: ACETAMINOPHEN
     Dosage: 1 DOSAGE FORMS DAILY;
     Route: 048
     Dates: start: 20110506, end: 20110511
  2. OKI [Suspect]
     Active Substance: KETOPROFEN LYSINE
     Route: 048
     Dates: start: 20110509, end: 20110509
  3. LEVOXACIN [Suspect]
     Active Substance: LEVOFLOXACIN
     Dosage: 500 MILLIGRAM DAILY;
     Route: 048
     Dates: start: 20110506, end: 20110511
  4. NEBIVOLOLO [Concomitant]
     Active Substance: NEBIVOLOL
     Route: 048
     Dates: start: 20100512, end: 20110211
  5. KETOPROFENE [Suspect]
     Active Substance: KETOPROFEN
     Route: 065

REACTIONS (2)
  - Hyperbilirubinaemia [Unknown]
  - Transaminases increased [Unknown]

NARRATIVE: CASE EVENT DATE: 20110511
